FAERS Safety Report 8668101 (Version 2)
Quarter: 2013Q4

REPORT INFORMATION
  Report Type: Spontaneous
  Country: US (occurrence: US)
  Receive Date: 20120717
  Receipt Date: 20131101
  Transmission Date: 20140711
  Serious: No
  Sender: FDA-Public Use
  Company Number: US-009507513-1207USA002702

PATIENT
  Age: 70 Year
  Sex: Male

DRUGS (3)
  1. VICTRELIS [Suspect]
     Dosage: 800 MG, TID
     Dates: start: 2012
  2. PEGINTRON [Suspect]
     Indication: HEPATITIS C
     Dosage: 150 MICROGRAM, QW
     Dates: start: 2011
  3. REBETOL [Suspect]

REACTIONS (2)
  - Platelet count decreased [Unknown]
  - Incorrect dose administered [Unknown]
